FAERS Safety Report 5735255-4 (Version None)
Quarter: 2008Q2

REPORT INFORMATION
  Report Type: 
  Country: None (occurrence: None)
  Receive Date: 20080508
  Receipt Date: 20080508
  Transmission Date: 20081010
  Serious: Yes (Disabling)
  Sender: FDA-Public Use
  Company Number: None

PATIENT
  Age: 49 Year
  Sex: Female
  Weight: 59.8748 kg

DRUGS (2)
  1. NAROPIN [Suspect]
     Indication: ARTHROSCOPY
     Dosage: 30ML ONCE OTHER
     Route: 050
     Dates: start: 20080506, end: 20080506
  2. NAROPIN [Suspect]
     Indication: NERVE BLOCK
     Dosage: 30ML ONCE OTHER
     Route: 050
     Dates: start: 20080506, end: 20080506

REACTIONS (4)
  - BLOOD PRESSURE INCREASED [None]
  - CONVULSION [None]
  - ELECTROCARDIOGRAM QT PROLONGED [None]
  - UNRESPONSIVE TO STIMULI [None]
